FAERS Safety Report 5113786-8 (Version None)
Quarter: 2006Q3

REPORT INFORMATION
  Report Type: 
  Country: None (occurrence: None)
  Receive Date: 20060920
  Receipt Date: 20060911
  Transmission Date: 20061208
  Serious: Yes (Death, Hospitalization)
  Sender: FDA-Public Use
  Company Number: 2006044919

PATIENT
  Sex: Male

DRUGS (1)
  1. GENOTROPIN [Suspect]
     Indication: DRUG USE FOR UNKNOWN INDICATION
     Dosage: 5.3 MG (5.3 MG, 1 IN 1 D), SUBCUTANEOUS
     Route: 058
     Dates: start: 20060321, end: 20060401

REACTIONS (4)
  - ASTHENIA [None]
  - COLON CANCER RECURRENT [None]
  - FISTULA [None]
  - WEIGHT DECREASED [None]
